FAERS Safety Report 5876621-6 (Version None)
Quarter: 2008Q3

REPORT INFORMATION
  Report Type: 
  Country: None (occurrence: None)
  Receive Date: 20080910
  Receipt Date: 20080902
  Transmission Date: 20090109
  Serious: Yes (Other)
  Sender: FDA-Public Use
  Company Number: US-ROCHE-571727

PATIENT
  Sex: Female

DRUGS (2)
  1. ACCUTANE [Suspect]
     Indication: ACNE
     Dosage: THE DOCTOR PRESCRIBED HER ACCUTANE 40 MG ALTERNATING WITH 80 MG.
     Route: 065
     Dates: start: 19980301, end: 19990501
  2. AMNESTEEM [Suspect]
     Route: 065
     Dates: start: 20070213, end: 20070820

REACTIONS (11)
  - ABDOMINAL PAIN [None]
  - ALOPECIA [None]
  - ARTHRALGIA [None]
  - CROHN'S DISEASE [None]
  - INFLAMMATORY BOWEL DISEASE [None]
  - INTESTINAL PERFORATION [None]
  - LIP DRY [None]
  - PROTEINURIA [None]
  - QUALITY OF LIFE DECREASED [None]
  - STRESS [None]
  - SUBCUTANEOUS ABSCESS [None]
